FAERS Safety Report 6059394-6 (Version None)
Quarter: 2009Q1

REPORT INFORMATION
  Report Type: 
  Country: None (occurrence: None)
  Receive Date: 20090130
  Receipt Date: 20090120
  Transmission Date: 20090719
  Serious: Yes (Hospitalization)
  Sender: FDA-Public Use
  Company Number: DE-AMGEN-UK308901

PATIENT
  Sex: Female

DRUGS (4)
  1. PANITUMUMAB [Suspect]
     Indication: COLORECTAL CANCER
     Route: 042
     Dates: start: 20080317, end: 20080919
  2. FLUORO-URACIL [Concomitant]
     Route: 065
     Dates: end: 20080919
  3. IRINOTECAN HCL [Concomitant]
     Route: 065
     Dates: end: 20080919
  4. LEUCOVORIN [Concomitant]
     Route: 065
     Dates: end: 20080919

REACTIONS (3)
  - CHEST PAIN [None]
  - PNEUMONIA [None]
  - PULMONARY EMBOLISM [None]
